FAERS Safety Report 17580634 (Version 4)
Quarter: 2021Q4

REPORT INFORMATION
  Report Type: Spontaneous
  Country: ES (occurrence: ES)
  Receive Date: 20200325
  Receipt Date: 20211110
  Transmission Date: 20220303
  Serious: Yes (Hospitalization, Other)
  Sender: FDA-Public Use
  Company Number: ES-ASTRAZENECA-2020SE26415

PATIENT
  Age: 74 Year
  Sex: Female

DRUGS (13)
  1. VENLAFAXINE [Interacting]
     Active Substance: VENLAFAXINE HYDROCHLORIDE
     Indication: Product used for unknown indication
     Dosage: 300 MILLIGRAM, QD
     Route: 065
  2. QUETIAPINE [Interacting]
     Active Substance: QUETIAPINE
     Indication: Depression
     Dosage: 50 MILLIGRAM
     Route: 048
  3. LITHIUM [Interacting]
     Active Substance: LITHIUM
     Indication: Product used for unknown indication
     Dosage: 600 MILLIGRAM
  4. TRAMADOL [Interacting]
     Active Substance: TRAMADOL
     Indication: Back pain
     Dosage: 1 DOSAGE FORM
     Route: 030
  5. QUETIAPINA                         /01270901/ [Concomitant]
     Indication: Depression
     Dosage: 25 MILLIGRAM, QD
     Route: 065
  6. ROTIGOTINE [Concomitant]
     Active Substance: ROTIGOTINE
     Indication: Product used for unknown indication
     Dosage: 4 MILLIGRAM, QD
     Route: 065
  7. BUDESONIDE [Concomitant]
     Active Substance: BUDESONIDE
     Indication: Product used for unknown indication
     Dosage: 3 MILLIGRAM, QD
     Route: 065
  8. LITHIUM CARBONATE [Concomitant]
     Active Substance: LITHIUM CARBONATE
     Dosage: 600 MILLIGRAM, QD
  9. DILTIAZEM                          /00489702/ [Concomitant]
     Indication: Product used for unknown indication
     Dosage: 120 MILLIGRAM, QD
     Route: 065
  10. FUROSEMIDA                         /00032601/ [Concomitant]
     Indication: Product used for unknown indication
     Dosage: 40 MILLIGRAM, QD
     Route: 065
  11. HYDROCHLOROTHIAZIDE\VALSARTAN [Concomitant]
     Active Substance: HYDROCHLOROTHIAZIDE\VALSARTAN
     Indication: Product used for unknown indication
     Dosage: 1 DOSAGE FORM, QD (1 DOSAGE FORM, 1/DAY)
     Route: 065
  12. DIGOXIN [Concomitant]
     Active Substance: DIGOXIN
     Indication: Product used for unknown indication
     Dosage: 0.25 MILLIGRAM, QD
     Route: 065
  13. LITHIUM [Concomitant]
     Active Substance: LITHIUM
     Indication: Product used for unknown indication
     Dosage: 600 MILLIGRAM, QD
     Route: 065

REACTIONS (12)
  - Serotonin syndrome [Recovered/Resolved]
  - Drug interaction [Recovered/Resolved]
  - Neutrophilia [Recovered/Resolved]
  - Mucosal dryness [Recovered/Resolved]
  - Leukocytosis [Recovered/Resolved]
  - Dysarthria [Recovered/Resolved]
  - Slow response to stimuli [Recovered/Resolved]
  - General physical health deterioration [Unknown]
  - Depressed level of consciousness [Recovered/Resolved]
  - Muscle spasticity [Recovered/Resolved]
  - Muscle rigidity [Recovered/Resolved]
  - Somnolence [Recovered/Resolved]
